FAERS Safety Report 23773750 (Version 2)
Quarter: 2024Q2

REPORT INFORMATION
  Report Type: Spontaneous
  Country: US (occurrence: US)
  Receive Date: 20240423
  Receipt Date: 20240503
  Transmission Date: 20240716
  Serious: Yes (Hospitalization)
  Sender: FDA-Public Use
  Company Number: US-Calliditas-2024CAL00280

PATIENT
  Age: 41 Year
  Sex: Male
  Weight: 88 kg

DRUGS (4)
  1. TARPEYO [Suspect]
     Active Substance: BUDESONIDE
     Indication: IgA nephropathy
     Dosage: 16 MG (4 MG CAPSULES) ONCE DAILY
     Route: 048
     Dates: start: 20231214
  2. DEPAKOTE [Concomitant]
     Active Substance: DIVALPROEX SODIUM
     Dosage: INCREASED TO 1000MG EACH MORNING AND 1500MG IN THE EVENING
  3. SERTRALINE [Concomitant]
     Active Substance: SERTRALINE HYDROCHLORIDE
     Dosage: INCREASED TO 100 MG DAILY
  4. PRAZOSIN [Concomitant]
     Active Substance: PRAZOSIN
     Dosage: INCREASED TO 3 MG DAILY

REACTIONS (3)
  - Product supply issue [Recovered/Resolved]
  - Product dose omission issue [Recovered/Resolved]
  - Homicidal ideation [Not Recovered/Not Resolved]

NARRATIVE: CASE EVENT DATE: 20240217
